FAERS Safety Report 6738521-9 (Version None)
Quarter: 2010Q2

REPORT INFORMATION
  Report Type: 
  Country: None (occurrence: None)
  Receive Date: 20100524
  Receipt Date: 20100520
  Transmission Date: 20101027
  Serious: Yes (Death)
  Sender: FDA-Public Use
  Company Number: PHHY2010CA32867

PATIENT
  Sex: Female

DRUGS (5)
  1. ACLASTA [Suspect]
     Indication: OSTEOPOROSIS
     Dosage: 5 MG, YEARLY
     Route: 042
     Dates: start: 20080416
  2. ACLASTA [Suspect]
     Dosage: 5 MG, YEARLY
     Route: 042
     Dates: start: 20090506
  3. LIPITOR [Concomitant]
  4. CALCIUM [Concomitant]
  5. VITAMIN D [Concomitant]

REACTIONS (4)
  - DIEULAFOY'S VASCULAR MALFORMATION [None]
  - DISSEMINATED INTRAVASCULAR COAGULATION [None]
  - LUNG NEOPLASM MALIGNANT [None]
  - UPPER GASTROINTESTINAL HAEMORRHAGE [None]
